FAERS Safety Report 24555271 (Version 2)
Quarter: 2024Q4

REPORT INFORMATION
  Report Type: Spontaneous
  Country: US (occurrence: US)
  Receive Date: 20241028
  Receipt Date: 20241217
  Transmission Date: 20250114
  Serious: No
  Sender: MANKIND PHARMA
  Company Number: US-MankindUS-000261

PATIENT
  Sex: Female

DRUGS (1)
  1. OFLOXACIN [Suspect]
     Active Substance: OFLOXACIN
     Indication: Ear infection
     Dosage: STRENGTH: 0.3 %

REACTIONS (4)
  - Pain [Unknown]
  - Incorrect dose administered [Unknown]
  - Inappropriate schedule of product administration [Unknown]
  - Ear pain [Unknown]
